FAERS Safety Report 5598301-7 (Version None)
Quarter: 2008Q1

REPORT INFORMATION
  Report Type: 
  Country: None (occurrence: None)
  Receive Date: 20080116
  Receipt Date: 20080102
  Transmission Date: 20080703
  Serious: Yes (Death)
  Sender: FDA-Public Use
  Company Number: RENA-1000004

PATIENT
  Age: 90 Year
  Sex: Female
  Weight: 39.5 kg

DRUGS (7)
  1. RENAGEL [Suspect]
     Indication: HYPERPHOSPHATAEMIA
     Dosage: 1.6 G, TID, ORAL
     Route: 048
     Dates: start: 20060925, end: 20071217
  2. ATROVENT [Concomitant]
  3. AMBIEN [Concomitant]
  4. OMEPRAZOLE [Concomitant]
  5. ASPIRIN [Concomitant]
  6. B12 (CYANOCOBALAMIN-TANNIN COMPLEX) [Concomitant]
  7. DIATX (CYANOCOBALAMIN, FOLIC ACID, PYRIDOXINE) [Concomitant]

REACTIONS (1)
  - ACUTE MYOCARDIAL INFARCTION [None]
